FAERS Safety Report 10419691 (Version 1)
Quarter: 2014Q3

REPORT INFORMATION
  Report Type: Spontaneous
  Country: GB (occurrence: GB)
  Receive Date: 20140829
  Receipt Date: 20140829
  Transmission Date: 20150326
  Serious: Yes (Other)
  Sender: FDA-Public Use
  Company Number: GB-BAXTER-2014BAX050674

PATIENT
  Age: 40 Year
  Sex: Male

DRUGS (7)
  1. TRANEXAMIC ACID. [Suspect]
     Active Substance: TRANEXAMIC ACID
     Indication: PRODUCT USED FOR UNKNOWN INDICATION
     Route: 042
  2. RFVIIA [Suspect]
     Active Substance: COAGULATION FACTOR VIIA HUMAN
     Indication: FACTOR VIII DEFICIENCY
     Route: 065
  3. RFVIIA [Suspect]
     Active Substance: COAGULATION FACTOR VIIA HUMAN
     Route: 065
  4. RFVIIA [Suspect]
     Active Substance: COAGULATION FACTOR VIIA HUMAN
     Indication: HAEMARTHROSIS
     Route: 065
  5. FEIBA [Suspect]
     Active Substance: ANTI-INHIBITOR COAGULANT COMPLEX
     Indication: MUSCLE HAEMORRHAGE
     Dosage: 200 U KG-1
     Route: 065
  6. FEIBA [Suspect]
     Active Substance: ANTI-INHIBITOR COAGULANT COMPLEX
     Indication: FACTOR VIII DEFICIENCY
     Dosage: 74 U KG-1
     Route: 065
  7. TRANEXAMIC ACID. [Suspect]
     Active Substance: TRANEXAMIC ACID
     Route: 048

REACTIONS (2)
  - Joint swelling [Recovered/Resolved]
  - Arthralgia [Recovered/Resolved]
